FAERS Safety Report 9269460 (Version 2)
Quarter: 2013Q2

REPORT INFORMATION
  Report Type: Spontaneous
  Country: KR (occurrence: KR)
  Receive Date: 20130503
  Receipt Date: 20130624
  Transmission Date: 20140414
  Serious: No
  Sender: FDA-Public Use
  Company Number: KR-JNJFOC-20130415666

PATIENT
  Age: 2 Month
  Sex: 0

DRUGS (1)
  1. CHILDREN^S TYLENOL [Suspect]
     Indication: PYREXIA
     Route: 048
     Dates: start: 201303, end: 201303

REACTIONS (1)
  - Yellow skin [Not Recovered/Not Resolved]
